FAERS Safety Report 5346556-6 (Version None)
Quarter: 2007Q2

REPORT INFORMATION
  Report Type: 
  Country: None (occurrence: None)
  Receive Date: 20070430
  Receipt Date: 20070305
  Transmission Date: 20071010
  Serious: No
  Sender: FDA-Public Use
  Company Number: 261334

PATIENT
  Age: 51 Year
  Sex: Female
  Weight: 117.9 kg

DRUGS (6)
  1. LEVEMIR [Suspect]
     Indication: BLOOD INSULIN
     Dosage: SUBCUTANEOUS
     Route: 058
  2. LEVEMIR [Suspect]
     Indication: INSULIN-REQUIRING TYPE II DIABETES MELLITUS
     Dosage: SUBCUTANEOUS
     Route: 058
  3. ALTACE [Concomitant]
  4. PLAVIX [Concomitant]
  5. CRESTOR [Concomitant]
  6. TOPROL-XL [Concomitant]

REACTIONS (1)
  - BURNING SENSATION [None]
